FAERS Safety Report 6474165-4 (Version None)
Quarter: 2009Q4

REPORT INFORMATION
  Report Type: 
  Country: None (occurrence: None)
  Receive Date: 20091204
  Receipt Date: 20091123
  Transmission Date: 20100525
  Serious: Yes (Disabling, Other)
  Sender: FDA-Public Use
  Company Number: PHHY2009FR48530

PATIENT
  Sex: Female

DRUGS (4)
  1. ACLASTA [Suspect]
     Indication: OSTEOPOROSIS
     Dosage: UNK
     Dates: start: 20091029
  2. COVERSYL [Concomitant]
     Dosage: 2 MG 1DF DAILY
     Dates: start: 20050101
  3. OESTRODOSE [Concomitant]
     Dosage: EVERY 2 DAYS
     Dates: start: 20040101
  4. UTROGESTAN [Concomitant]
     Dosage: 10 DAYS BY MONTH
     Dates: start: 20040101

REACTIONS (15)
  - ARTHRALGIA [None]
  - BLEPHARITIS [None]
  - BURNING SENSATION [None]
  - CHILLS [None]
  - DIARRHOEA [None]
  - FATIGUE [None]
  - GASTROINTESTINAL DISORDER [None]
  - GINGIVITIS [None]
  - HEADACHE [None]
  - INFLUENZA LIKE ILLNESS [None]
  - MUSCULOSKELETAL STIFFNESS [None]
  - MYALGIA [None]
  - PERIPHERAL COLDNESS [None]
  - PYREXIA [None]
  - VOMITING [None]
